FAERS Safety Report 11252184 (Version 1)
Quarter: 2015Q3

REPORT INFORMATION
  Report Type: Spontaneous
  Country: US (occurrence: US)
  Receive Date: 20150708
  Receipt Date: 20150708
  Transmission Date: 20151125
  Serious: Yes (Other)
  Sender: FDA-Public Use
  Company Number: US-ELI_LILLY_AND_COMPANY-US201309004749

PATIENT
  Sex: Female

DRUGS (2)
  1. PROZAC [Suspect]
     Active Substance: FLUOXETINE HYDROCHLORIDE
     Dosage: 40 MG, QD
     Route: 048
  2. LATUDA [Suspect]
     Active Substance: LURASIDONE HYDROCHLORIDE
     Indication: SUICIDAL IDEATION
     Dosage: 40 MG, QD
     Route: 048
     Dates: start: 201305, end: 20130815

REACTIONS (2)
  - Suicidal ideation [Unknown]
  - Maternal exposure during pregnancy [Unknown]
